FAERS Safety Report 6110483-7 (Version None)
Quarter: 2009Q1

REPORT INFORMATION
  Report Type: 
  Country: None (occurrence: None)
  Receive Date: 20090310
  Receipt Date: 20090304
  Transmission Date: 20090719
  Serious: Yes (Life-Threatening, Other)
  Sender: FDA-Public Use
  Company Number: PHHY2009JP06691

PATIENT
  Age: 14 Year
  Sex: Male

DRUGS (10)
  1. GLEEVEC [Suspect]
     Indication: ACUTE LYMPHOCYTIC LEUKAEMIA
     Dosage: 450 MG/DAY
     Route: 048
     Dates: start: 20081030
  2. AMBISOME [Suspect]
     Indication: FUNGAL INFECTION
     Dosage: 200 MG/DAY
     Route: 042
     Dates: start: 20081015, end: 20081128
  3. VORICONAZOLE [Suspect]
     Dosage: UNK
     Dates: start: 20081022
  4. CYLOCIDE [Suspect]
     Dosage: UNK
     Dates: start: 20081125
  5. GLYCEOL [Concomitant]
     Dosage: 200 ML/DAY
     Dates: start: 20081018
  6. ENDOXAN [Concomitant]
     Dosage: 1500 MG/DAY
     Dates: start: 20081004, end: 20081004
  7. MEROPEN [Concomitant]
     Indication: ACUTE LYMPHOCYTIC LEUKAEMIA
     Dosage: 1.5 MG/DAY
     Dates: start: 20081031, end: 20081108
  8. TIENAM [Concomitant]
     Indication: ACUTE LYMPHOCYTIC LEUKAEMIA
     Dosage: 1.5 MG/DAY
  9. SOLU-MEDROL [Concomitant]
     Indication: ACUTE LYMPHOCYTIC LEUKAEMIA
     Dosage: 325 MG/DAY
     Dates: start: 20081125, end: 20081128
  10. FUNGUARD [Concomitant]
     Indication: FUNGAL INFECTION
     Dosage: UNK
     Dates: start: 20081013, end: 20081114

REACTIONS (27)
  - ABDOMINAL DISTENSION [None]
  - ABDOMINAL PAIN [None]
  - BLOOD AMYLASE INCREASED [None]
  - BLOOD PRESSURE DECREASED [None]
  - CARBON DIOXIDE INCREASED [None]
  - CARDIAC ARREST [None]
  - CIRCULATORY COLLAPSE [None]
  - COLD SWEAT [None]
  - DISSEMINATED INTRAVASCULAR COAGULATION [None]
  - DYSKINESIA [None]
  - DYSPNOEA [None]
  - GENERAL PHYSICAL HEALTH DETERIORATION [None]
  - HEART RATE DECREASED [None]
  - HYPERGLYCAEMIA [None]
  - HYPOKALAEMIA [None]
  - LUNG ABSCESS [None]
  - LUNG DISORDER [None]
  - NAUSEA [None]
  - OXYGEN SATURATION DECREASED [None]
  - PANCREATITIS ACUTE [None]
  - PUPILLARY REFLEX IMPAIRED [None]
  - PYREXIA [None]
  - RESPIRATORY ARREST [None]
  - RESPIRATORY FAILURE [None]
  - SHOCK [None]
  - URINE OUTPUT DECREASED [None]
  - VOMITING [None]
